FAERS Safety Report 22146622 (Version 1)
Quarter: 2023Q1

REPORT INFORMATION
  Report Type: Spontaneous
  Country: MO (occurrence: MO)
  Receive Date: 20230328
  Receipt Date: 20230328
  Transmission Date: 20230418
  Serious: Yes (Other)
  Sender: FDA-Public Use
  Company Number: MO-PFIZER INC-PV202300054150

PATIENT
  Age: 40 Year

DRUGS (1)
  1. SUTENT [Suspect]
     Active Substance: SUNITINIB MALATE
     Indication: Gastrointestinal stromal tumour
     Dosage: UNK

REACTIONS (1)
  - Noninfective sialoadenitis [Unknown]
